FAERS Safety Report 4679922-2 (Version None)
Quarter: 2005Q2

REPORT INFORMATION
  Report Type: 
  Country: None (occurrence: None)
  Receive Date: 20050531
  Receipt Date: 20050513
  Transmission Date: 20051028
  Serious: Yes (Hospitalization)
  Sender: FDA-Public Use
  Company Number: 209088

PATIENT
  Age: 43 Year
  Sex: Female
  Weight: 77 kg

DRUGS (3)
  1. HERCEPTIN [Suspect]
     Indication: BREAST CANCER
     Dosage: SEE IMAGE
     Route: 042
     Dates: start: 20030724, end: 20030724
  2. HERCEPTIN [Suspect]
     Indication: BREAST CANCER
     Dosage: SEE IMAGE
     Route: 042
     Dates: start: 20030814
  3. HYDROCORTISONE [Concomitant]

REACTIONS (6)
  - ERYSIPELAS [None]
  - HAEMATOCRIT DECREASED [None]
  - ILL-DEFINED DISORDER [None]
  - OVARIAN CYST [None]
  - PROTHROMBIN TIME PROLONGED [None]
  - UTERINE LEIOMYOMA [None]
